FAERS Safety Report 9734390 (Version 3)
Quarter: 2014Q1

REPORT INFORMATION
  Report Type: Spontaneous
  Country: US (occurrence: US)
  Receive Date: 20131206
  Receipt Date: 20140206
  Transmission Date: 20141002
  Serious: Yes (Hospitalization)
  Sender: FDA-Public Use
  Company Number: US-BIOGENIDEC-2013BI116329

PATIENT
  Age: 52 Year
  Sex: Male

DRUGS (1)
  1. TYSABRI [Suspect]
     Indication: MULTIPLE SCLEROSIS
     Route: 042
     Dates: start: 20091120, end: 20131118

REACTIONS (4)
  - Clostridium difficile infection [Not Recovered/Not Resolved]
  - Enteritis infectious [Recovered/Resolved]
  - Abdominal infection [Recovered/Resolved]
  - Diarrhoea [Not Recovered/Not Resolved]
